FAERS Safety Report 16075296 (Version 1)
Quarter: 2019Q1

REPORT INFORMATION
  Report Type: Spontaneous
  Country: US (occurrence: US)
  Receive Date: 20190315
  Receipt Date: 20190315
  Transmission Date: 20190418
  Serious: No
  Sender: FDA-Public Use
  Company Number: US-TEVA-2019-US-1014591

PATIENT
  Sex: Female

DRUGS (1)
  1. QUETIAPINE FUMARATE. [Suspect]
     Active Substance: QUETIAPINE FUMARATE
     Indication: ANXIETY
     Dates: start: 2019

REACTIONS (5)
  - Performance status decreased [Unknown]
  - Anxiety [Unknown]
  - Nausea [Unknown]
  - Drug ineffective [Unknown]
  - Product substitution issue [Unknown]
